FAERS Safety Report 19633738 (Version 1)
Quarter: 2021Q3

REPORT INFORMATION
  Report Type: Spontaneous
  Country: US (occurrence: US)
  Receive Date: 20210729
  Receipt Date: 20210729
  Transmission Date: 20211014
  Serious: Yes (Other)
  Sender: FDA-Public Use
  Company Number: None

PATIENT
  Age: 71 Year
  Sex: Female
  Weight: 60.75 kg

DRUGS (6)
  1. AMLODIPINE [Concomitant]
     Active Substance: AMLODIPINE BESYLATE
  2. LORATADINE. [Concomitant]
     Active Substance: LORATADINE
  3. DULOXETINE CAPSULES 30 MG [Suspect]
     Active Substance: DULOXETINE
     Indication: DEPRESSION
     Dosage: ?          QUANTITY:1 CAPSULE(S);?
     Route: 048
  4. MULTI [Concomitant]
  5. ROSUVASTATIN. [Concomitant]
     Active Substance: ROSUVASTATIN
  6. ASPIRIN BABY [Concomitant]
     Active Substance: ASPIRIN

REACTIONS (4)
  - Pain [None]
  - Orgasm abnormal [None]
  - Stress [None]
  - Sleep disorder [None]

NARRATIVE: CASE EVENT DATE: 20201201
